FAERS Safety Report 25373357 (Version 3)
Quarter: 2025Q3

REPORT INFORMATION
  Report Type: Spontaneous
  Country: EU (occurrence: EU)
  Receive Date: 20250529
  Receipt Date: 20250722
  Transmission Date: 20251021
  Serious: Yes (Disabling)
  Sender: AIRGAS
  Company Number: EU-ALSI-2025000127

PATIENT
  Sex: Male

DRUGS (1)
  1. OXYGEN [Suspect]
     Active Substance: OXYGEN
     Indication: Accidental exposure to product packaging
     Dates: start: 20250515, end: 20250515

REACTIONS (1)
  - Limb injury [Recovering/Resolving]

NARRATIVE: CASE EVENT DATE: 20250515
